FAERS Safety Report 8044625-3 (Version None)
Quarter: 2012Q1

REPORT INFORMATION
  Report Type: 
  Country: None (occurrence: None)
  Receive Date: 20120113
  Receipt Date: 20120104
  Transmission Date: 20120608
  Serious: Yes (Other)
  Sender: FDA-Public Use
  Company Number: US-PFIZER INC-2012004326

PATIENT
  Age: 28 Year
  Sex: Female

DRUGS (2)
  1. ZOLPIDEM [Suspect]
     Dosage: 10 MG, UNK
  2. ZOLOFT [Suspect]
     Dosage: 100 MG, UNK

REACTIONS (4)
  - ACCIDENTAL EXPOSURE [None]
  - CIRCUMSTANCE OR INFORMATION CAPABLE OF LEADING TO MEDICATION ERROR [None]
  - ATAXIA [None]
  - CONFUSIONAL STATE [None]
